FAERS Safety Report 7403032-4 (Version None)
Quarter: 2011Q1

REPORT INFORMATION
  Report Type: 
  Country: None (occurrence: None)
  Receive Date: 20110331
  Receipt Date: 20110315
  Transmission Date: 20110831
  Serious: Yes (Hospitalization)
  Sender: FDA-Public Use
  Company Number: D1101347

PATIENT
  Age: 85 Year
  Sex: Female

DRUGS (3)
  1. PLAVIX [Concomitant]
  2. JANTOVEN [Suspect]
     Indication: DEEP VEIN THROMBOSIS
     Dosage: ORAL
     Route: 048
     Dates: start: 20100801, end: 20101001
  3. JANTOVEN [Suspect]
     Indication: DEEP VEIN THROMBOSIS
     Dosage: ORAL
     Route: 048
     Dates: start: 20100801, end: 20101001

REACTIONS (2)
  - HAEMORRHAGE [None]
  - FALL [None]
